FAERS Safety Report 8510878-8 (Version None)
Quarter: 2012Q3

REPORT INFORMATION
  Report Type: 
  Country: None (occurrence: None)
  Receive Date: 20120709
  Receipt Date: 20120709
  Transmission Date: 20120928
  Serious: Yes (Hospitalization)
  Sender: FDA-Public Use
  Company Number: None

PATIENT
  Sex: Male
  Weight: 77.64 kg

DRUGS (1)
  1. BEVACIZUMAB (RHUMAB VEGF) [Suspect]
     Dosage: 1128 MG

REACTIONS (4)
  - FLATULENCE [None]
  - MUSCLE SPASMS [None]
  - COMPUTERISED TOMOGRAM ABDOMEN ABNORMAL [None]
  - ABDOMINAL DISTENSION [None]
